FAERS Safety Report 7313313-0 (Version None)
Quarter: 2011Q1

REPORT INFORMATION
  Report Type: 
  Country: None (occurrence: None)
  Receive Date: 20110225
  Receipt Date: 20101029
  Transmission Date: 20110831
  Serious: No
  Sender: FDA-Public Use
  Company Number: US-MYLANLABS-2010S1018363

PATIENT
  Age: 52 Year
  Sex: Female

DRUGS (3)
  1. METFORMIN HCL [Suspect]
     Indication: DIABETES MELLITUS
     Route: 048
     Dates: start: 20100924
  2. LOVAZA [Concomitant]
     Dates: start: 20100219
  3. VIVELLE-DOT [Concomitant]
     Route: 062
     Dates: start: 20090723

REACTIONS (1)
  - MALAISE [None]
